FAERS Safety Report 8036407-3 (Version None)
Quarter: 2012Q1

REPORT INFORMATION
  Report Type: 
  Country: None (occurrence: None)
  Receive Date: 20120111
  Receipt Date: 20120105
  Transmission Date: 20120608
  Serious: Yes (Hospitalization)
  Sender: FDA-Public Use
  Company Number: US-CELGENEUS-163-21880-12010422

PATIENT
  Sex: Female
  Weight: 66.4 kg

DRUGS (16)
  1. REVLIMID [Suspect]
     Indication: MULTIPLE MYELOMA
     Dosage: 25 MILLIGRAM
     Route: 048
     Dates: start: 20111108
  2. OXYCODONE HCL [Concomitant]
     Indication: PAIN
     Dosage: 2
     Route: 048
  3. INSULIN GLARGINE [Concomitant]
     Dosage: 100 UNIT/ML
     Route: 065
  4. SIMVASTATIN [Concomitant]
     Dosage: 1
     Route: 048
  5. DEXAMETHASONE ACETATE [Suspect]
     Indication: MULTIPLE MYELOMA
     Dosage: 40 MILLIGRAM
     Route: 065
     Dates: start: 20111110
  6. ANTIBIOTICS [Concomitant]
     Indication: GANGRENE
     Route: 065
     Dates: start: 20111201
  7. FLUID [Concomitant]
     Route: 041
     Dates: start: 20111201
  8. CLOPIDOGREL [Concomitant]
     Dosage: 1
     Route: 048
  9. VANCOMYCIN [Concomitant]
     Route: 065
  10. KEFLEX [Concomitant]
     Indication: CELLULITIS
     Dosage: 1
     Route: 048
  11. CEFEPIME [Concomitant]
     Route: 065
  12. SODIUM BICARBONATE [Concomitant]
     Indication: METABOLIC ACIDOSIS
     Dosage: 2
     Route: 048
  13. FENTANYL [Concomitant]
     Dosage: 1
     Route: 062
  14. WARFARIN SODIUM [Concomitant]
     Route: 065
  15. POLYETHYLENE GLYCOL [Concomitant]
     Indication: CONSTIPATION
     Dosage: 17 GRAM
     Route: 048
  16. LISINOPRIL [Concomitant]
     Dosage: 1
     Route: 048

REACTIONS (1)
  - ARTERIAL THROMBOSIS LIMB [None]
